FAERS Safety Report 15821483 (Version 2)
Quarter: 2019Q1

REPORT INFORMATION
  Report Type: Spontaneous
  Country: US (occurrence: US)
  Receive Date: 20190114
  Receipt Date: 20190131
  Transmission Date: 20190417
  Serious: Yes (Hospitalization, Other)
  Sender: FDA-Public Use
  Company Number: US-SA-2019SA005081

PATIENT
  Age: 35 Year
  Sex: Female

DRUGS (4)
  1. CLOMIFENE CITRATE [Suspect]
     Active Substance: CLOMIPHENE
     Dosage: 100 MG, QD, FIVE DAY COURSES
     Dates: start: 19691010
  2. CLOMIFENE CITRATE [Suspect]
     Active Substance: CLOMIPHENE
     Indication: INFERTILITY FEMALE
     Dosage: 50 MG, QD, FIVE-DAY COURSES
     Dates: start: 196905
  3. CLOMIFENE CITRATE [Suspect]
     Active Substance: CLOMIPHENE
     Dosage: 100 MG, QD, FIVE DAY COURSES
     Dates: start: 19690902
  4. CLOMIFENE CITRATE [Suspect]
     Active Substance: CLOMIPHENE
     Indication: OLIGOMENORRHOEA
     Dosage: 50 MG, QD, FIVE-DAY COURSES
     Dates: start: 196907

REACTIONS (4)
  - Urinary retention [Recovered/Resolved]
  - Clubbing [Recovered/Resolved]
  - Ureteric dilatation [Recovered/Resolved]
  - Uterine leiomyoma [Recovered/Resolved]

NARRATIVE: CASE EVENT DATE: 19691110
